FAERS Safety Report 6050930-2 (Version None)
Quarter: 2009Q1

REPORT INFORMATION
  Report Type: 
  Country: None (occurrence: None)
  Receive Date: 20090121
  Receipt Date: 20090106
  Transmission Date: 20090719
  Serious: Yes (Life-Threatening, Hospitalization)
  Sender: FDA-Public Use
  Company Number: 1000003529

PATIENT
  Age: 47 Year
  Sex: Male

DRUGS (8)
  1. ESCITALOPRAM [Suspect]
     Dosage: ORAL
     Route: 048
  2. TEMSIROLIMUS [Suspect]
     Indication: RENAL CELL CARCINOMA
     Dosage: 25 MG (25 MG, 1 IN 1 D), INTRAVENOUS; 25 MG (25 MG, 1 IN 1 D), INTAVENOUS
     Route: 042
     Dates: start: 20081030, end: 20081030
  3. TEMSIROLIMUS [Suspect]
     Indication: RENAL CELL CARCINOMA
     Dosage: 25 MG (25 MG, 1 IN 1 D), INTRAVENOUS; 25 MG (25 MG, 1 IN 1 D), INTAVENOUS
     Route: 042
     Dates: start: 20081106, end: 20081106
  4. ARIXTRA [Suspect]
     Dates: start: 20081112
  5. VISCERALGINE [Concomitant]
  6. DEPAKOTE [Concomitant]
  7. FORLAX [Concomitant]
  8. STILNOX [Concomitant]

REACTIONS (5)
  - ANAEMIA [None]
  - LEUKOCYTOSIS [None]
  - PLEURAL EFFUSION [None]
  - SPLENIC HAEMORRHAGE [None]
  - THROMBOCYTHAEMIA [None]
